FAERS Safety Report 6986937-8 (Version None)
Quarter: 2010Q3

REPORT INFORMATION
  Report Type: 
  Country: None (occurrence: None)
  Receive Date: 20100916
  Receipt Date: 20100908
  Transmission Date: 20110219
  Serious: Yes (Hospitalization)
  Sender: FDA-Public Use
  Company Number: US-BIOGENIDEC-2010BI020830

PATIENT
  Age: 43 Year
  Sex: Male

DRUGS (1)
  1. TYSABRI [Suspect]
     Indication: MULTIPLE SCLEROSIS
     Route: 042
     Dates: start: 20090910, end: 20100621

REACTIONS (6)
  - DRUG INEFFECTIVE [None]
  - FALL [None]
  - HYPERSOMNIA [None]
  - MOBILITY DECREASED [None]
  - PULMONARY THROMBOSIS [None]
  - THROMBOSIS [None]
